FAERS Safety Report 5318473-9 (Version None)
Quarter: 2007Q2

REPORT INFORMATION
  Report Type: 
  Country: None (occurrence: None)
  Receive Date: 20070501
  Receipt Date: 20070424
  Transmission Date: 20071010
  Serious: Yes (Hospitalization, Disabling, Other)
  Sender: FDA-Public Use
  Company Number: 062-C5013-07041298

PATIENT
  Age: 66 Year
  Sex: Male

DRUGS (12)
  1. CC-5013 (LENALIDOMIDE) (CAPSULES) [Suspect]
     Indication: MULTIPLE MYELOMA
     Dosage: DAILY, ORAL
     Route: 048
     Dates: start: 20070127, end: 20070424
  2. DUROGESIC (PLASTER (FENTANYL) -200 [Concomitant]
  3. SEVREDO (MORPHINE HYDROCHLORIDE) [Concomitant]
  4. TRANCOPAL DOLO (FLUPIRTINE MALEATE) [Concomitant]
  5. NOVALGIN (METAMIZOLE SODIUM) [Concomitant]
  6. NEURONTIN [Concomitant]
  7. PANTOPRAZOL (PANTOPRAZOLE) [Concomitant]
  8. MACROGOL (MACROGOL) [Concomitant]
  9. PASPERTIN (METOCLOPRAMIDE HYDROCHLORIDE) [Concomitant]
  10. SIMETICON (DIMETICONE, ACTIVATED) [Concomitant]
  11. TAVANIC (LEVOFLOXACIN) [Concomitant]
  12. ENOXAPARIN SODIUM [Concomitant]

REACTIONS (1)
  - ENCEPHALOPATHY [None]
